FAERS Safety Report 10453254 (Version 1)
Quarter: 2014Q3

REPORT INFORMATION
  Report Type: Spontaneous
  Country: US (occurrence: US)
  Receive Date: 20140915
  Receipt Date: 20140915
  Transmission Date: 20150326
  Serious: No
  Sender: FDA-Public Use
  Company Number: US-PFIZER INC-2014252139

PATIENT
  Age: 59 Year
  Sex: Male
  Weight: 113.38 kg

DRUGS (5)
  1. LYRICA [Suspect]
     Active Substance: PREGABALIN
     Indication: HYPOAESTHESIA
  2. PROVIGIL [Concomitant]
     Active Substance: MODAFINIL
     Indication: POOR QUALITY SLEEP
     Dosage: 200 MG, 1X/DAY
  3. MS CONTIN [Concomitant]
     Active Substance: MORPHINE SULFATE
     Indication: PAIN
     Dosage: 15 MG, 2X/DAY
  4. LYRICA [Suspect]
     Active Substance: PREGABALIN
     Indication: BURNING SENSATION
     Dosage: 225 MG, 2X/DAY
     Route: 048
  5. PROVIGIL [Concomitant]
     Active Substance: MODAFINIL
     Indication: HYPERSOMNIA

REACTIONS (3)
  - Hypoaesthesia [Unknown]
  - Burning sensation [Unknown]
  - Drug ineffective for unapproved indication [Unknown]

NARRATIVE: CASE EVENT DATE: 2014
